FAERS Safety Report 13854563 (Version 2)
Quarter: 2017Q3

REPORT INFORMATION
  Report Type: Report from Study
  Country: US (occurrence: US)
  Receive Date: 20170810
  Receipt Date: 20170911
  Transmission Date: 20171127
  Serious: Yes (Death, Other)
  Sender: FDA-Public Use
  Company Number: US-PFIZER INC-2017342839

PATIENT
  Age: 15 Year
  Sex: Female

DRUGS (2)
  1. IBUPROFEN. [Suspect]
     Active Substance: IBUPROFEN
     Dosage: UNK
  2. QUETIAPINE. [Suspect]
     Active Substance: QUETIAPINE
     Dosage: UNK

REACTIONS (11)
  - Ventricular arrhythmia [Fatal]
  - Tachycardia [Fatal]
  - Toxicity to various agents [Fatal]
  - Asthma [Fatal]
  - Bronchial hyperreactivity [Fatal]
  - Electrocardiogram QRS complex prolonged [Fatal]
  - Metabolic acidosis [Fatal]
  - Coma [Fatal]
  - Depressed level of consciousness [Fatal]
  - Hypotension [Fatal]
  - Anion gap [Fatal]
